FAERS Safety Report 10480787 (Version 1)
Quarter: 2014Q3

REPORT INFORMATION
  Report Type: Spontaneous
  Country: US (occurrence: None)
  Receive Date: 20140925
  Receipt Date: 20140925
  Transmission Date: 20150326
  Serious: Yes (Hospitalization)
  Sender: FDA-Public Use
  Company Number: US-H14001-14-00701

PATIENT
  Age: 44 Year
  Sex: Female

DRUGS (3)
  1. ATENOLOL. [Suspect]
     Active Substance: ATENOLOL
     Indication: PRODUCT USED FOR UNKNOWN INDICATION
     Dosage: 4.5 MG(TOTAL), ORAL
     Route: 048
  2. LISINOPRIL. [Suspect]
     Active Substance: LISINOPRIL
     Indication: PRODUCT USED FOR UNKNOWN INDICATION
     Route: 048
  3. CHLORTHALIDONE. [Suspect]
     Active Substance: CHLORTHALIDONE
     Indication: PRODUCT USED FOR UNKNOWN INDICATION
     Dosage: 2.25 MG (TOTAL), ORAL
     Route: 048

REACTIONS (11)
  - Diastolic dysfunction [None]
  - Continuous haemodiafiltration [None]
  - Hypotension [None]
  - Renal failure [None]
  - Acute respiratory distress syndrome [None]
  - Coma [None]
  - Organ failure [None]
  - Circulatory collapse [None]
  - Heart rate decreased [None]
  - Sinus bradycardia [None]
  - Overdose [None]
